FAERS Safety Report 6131173-0 (Version None)
Quarter: 2009Q1

REPORT INFORMATION
  Report Type: 
  Country: None (occurrence: None)
  Receive Date: 20090325
  Receipt Date: 20090313
  Transmission Date: 20090719
  Serious: Yes (Hospitalization)
  Sender: FDA-Public Use
  Company Number: DE-WYE-H08646809

PATIENT
  Age: 87 Year
  Sex: Female

DRUGS (3)
  1. PANTOZOL [Suspect]
     Indication: ABDOMINAL PAIN UPPER
     Dosage: 40 MG, UNKNOWN FREQUENCY
     Route: 048
     Dates: start: 20090220, end: 20090223
  2. TORASEMIDE [Concomitant]
     Indication: SLEEP DISORDER
     Dosage: UNKNOWN
  3. BROMAZANIL [Concomitant]
     Indication: SLEEP DISORDER
     Dosage: UNKNOWN

REACTIONS (4)
  - EOSINOPHILIA [None]
  - ERYTHEMA MULTIFORME [None]
  - MUCOSAL ULCERATION [None]
  - TUBULOINTERSTITIAL NEPHRITIS [None]
